FAERS Safety Report 7285694-8 (Version None)
Quarter: 2011Q1

REPORT INFORMATION
  Report Type: 
  Country: None (occurrence: None)
  Receive Date: 20110124
  Receipt Date: 20110106
  Transmission Date: 20110831
  Serious: Yes (Hospitalization)
  Sender: FDA-Public Use
  Company Number: 2011PROUSA00161

PATIENT
  Age: 56 Year
  Sex: Male
  Weight: 99.3 kg

DRUGS (1)
  1. PROVENGE [Suspect]
     Indication: PROSTATE CANCER METASTATIC
     Dosage: 250 ML, SINGLE, INTRAVENOUS
     Route: 042
     Dates: start: 20101213, end: 20101213

REACTIONS (9)
  - CHILLS [None]
  - AGEUSIA [None]
  - HEART RATE INCREASED [None]
  - PROSTATOMEGALY [None]
  - DECREASED APPETITE [None]
  - PYREXIA [None]
  - BLOOD PRESSURE INCREASED [None]
  - DYSURIA [None]
  - TREMOR [None]
